FAERS Safety Report 11860242 (Version 2)
Quarter: 2016Q1

REPORT INFORMATION
  Report Type: Spontaneous
  Country: NL (occurrence: NL)
  Receive Date: 20151222
  Receipt Date: 20160127
  Transmission Date: 20160526
  Serious: Yes (Other)
  Sender: FDA-Public Use
  Company Number: NL-PFIZER INC-2015451842

PATIENT
  Age: 77 Year
  Sex: Male

DRUGS (3)
  1. LOSANOX [Concomitant]
     Dosage: 50 MG, 1X/DAY
     Route: 048
  2. AZITHROMYCIN ANHYDROUS. [Suspect]
     Active Substance: AZITHROMYCIN ANHYDROUS
     Indication: BACTERIAL INFECTION
     Dosage: 500 MG, 1X/DAY
     Route: 048
     Dates: start: 20151026
  3. CIPROFLOXACIN. [Interacting]
     Active Substance: CIPROFLOXACIN
     Dosage: 500 MG, 2X/DAY
     Route: 048
     Dates: start: 20151029, end: 20151114

REACTIONS (2)
  - Drug interaction [Recovered/Resolved]
  - Deafness unilateral [Recovered/Resolved]

NARRATIVE: CASE EVENT DATE: 20151114
